FAERS Safety Report 8226380-7 (Version None)
Quarter: 2012Q1

REPORT INFORMATION
  Report Type: 
  Country: None (occurrence: None)
  Receive Date: 20120321
  Receipt Date: 20120312
  Transmission Date: 20120608
  Serious: Yes (Hospitalization, Other)
  Sender: FDA-Public Use
  Company Number: US-ASTRAZENECA-2011SE46972

PATIENT
  Age: 63 Year
  Sex: Female
  Weight: 64 kg

DRUGS (16)
  1. SEROQUEL [Suspect]
     Indication: BIPOLAR DISORDER
     Route: 048
  2. SEROQUEL [Suspect]
     Dosage: 200 MG, HALF TABLET
     Route: 048
  3. SEROQUEL [Suspect]
     Route: 048
     Dates: start: 20090101
  4. NEXIUM [Concomitant]
     Route: 048
  5. SYMBICORT [Concomitant]
     Route: 048
  6. VICODIN [Concomitant]
     Dosage: AS NEEDED
  7. SEROQUEL [Suspect]
     Route: 048
  8. ZOLPIDEM [Concomitant]
  9. DILTIAZEM HCL [Concomitant]
  10. ATIVAN [Concomitant]
  11. CYMBALTA [Concomitant]
  12. SEROQUEL [Suspect]
     Route: 048
  13. ACETAZOLAMIDE [Concomitant]
  14. PROAIR HFA [Concomitant]
  15. KLOR-CON [Concomitant]
  16. SPIRIVA [Concomitant]

REACTIONS (13)
  - EYE PRURITUS [None]
  - WRONG TECHNIQUE IN DRUG USAGE PROCESS [None]
  - MOOD SWINGS [None]
  - ABNORMAL DREAMS [None]
  - INCORRECT DOSE ADMINISTERED [None]
  - RENAL FAILURE [None]
  - GLAUCOMA [None]
  - EYELID PTOSIS [None]
  - DIARRHOEA [None]
  - ADVERSE DRUG REACTION [None]
  - CATARACT [None]
  - CONFUSIONAL STATE [None]
  - PSYCHOMOTOR HYPERACTIVITY [None]
